FAERS Safety Report 10934843 (Version 1)
Quarter: 2015Q1

REPORT INFORMATION
  Report Type: Spontaneous
  Country: US (occurrence: US)
  Receive Date: 20150320
  Receipt Date: 20150320
  Transmission Date: 20150721
  Serious: No
  Sender: FDA-Public Use
  Company Number: US-AMGEN-USASP2015024973

PATIENT
  Age: 49 Year
  Sex: Female

DRUGS (1)
  1. ENBREL [Suspect]
     Active Substance: ETANERCEPT
     Indication: PSORIATIC ARTHROPATHY
     Dosage: 50 MG, QWK
     Route: 058
     Dates: start: 20150217

REACTIONS (6)
  - Arthralgia [Recovered/Resolved]
  - Formication [Unknown]
  - Headache [Recovered/Resolved]
  - Muscle spasms [Unknown]
  - Injection site erythema [Unknown]
  - Erythema [Unknown]

NARRATIVE: CASE EVENT DATE: 2015
